FAERS Safety Report 6035410-2 (Version None)
Quarter: 2009Q1

REPORT INFORMATION
  Report Type: 
  Country: None (occurrence: None)
  Receive Date: 20090112
  Receipt Date: 20090112
  Transmission Date: 20090719
  Serious: Yes (Hospitalization, Disabling)
  Sender: FDA-Public Use
  Company Number: None

PATIENT
  Age: 45 Year
  Sex: Female
  Weight: 104.3273 kg

DRUGS (1)
  1. HYOMAX (HYOSCYAMINE HCL) [Suspect]
     Indication: IRRITABLE BOWEL SYNDROME
     Dosage: .375 2 X DAILY

REACTIONS (1)
  - SUPRAVENTRICULAR TACHYCARDIA [None]
